FAERS Safety Report 24899452 (Version 2)
Quarter: 2025Q1

REPORT INFORMATION
  Report Type: Report from Study
  Country: US (occurrence: US)
  Receive Date: 20250129
  Receipt Date: 20250225
  Transmission Date: 20250409
  Serious: No
  Sender: ACADIA PHARMACEUTICALS
  Company Number: US-ACADIA PHARMACEUTICALS INC.-ACA-2025-PIM-000586

PATIENT
  Sex: Female

DRUGS (12)
  1. NUPLAZID [Suspect]
     Active Substance: PIMAVANSERIN TARTRATE
     Indication: Parkinson^s disease psychosis
     Dosage: 34 MILLIGRAM, QD
     Route: 048
  2. CARBIDOPA LEVODOPA [Concomitant]
     Active Substance: CARBIDOPA\LEVODOPA
  3. FAMOTIDINE [Concomitant]
     Active Substance: FAMOTIDINE
  4. FLECAINIDE [Concomitant]
     Active Substance: FLECAINIDE
  5. MIDODRINE [Concomitant]
     Active Substance: MIDODRINE
  6. XARELTO [Concomitant]
     Active Substance: RIVAROXABAN
  7. ALPRAZOLAM [Concomitant]
     Active Substance: ALPRAZOLAM
  8. DORZOLAMIDE [Concomitant]
     Active Substance: DORZOLAMIDE
  9. LATANOPROST [Concomitant]
     Active Substance: LATANOPROST
  10. CALCIUM [Concomitant]
     Active Substance: CALCIUM
  11. VITAMIN D3 [Concomitant]
     Active Substance: CHOLECALCIFEROL
  12. NAPHAZOLINE HYDROCHLORIDE [Concomitant]
     Active Substance: NAPHAZOLINE HYDROCHLORIDE

REACTIONS (3)
  - Corrective lens user [Unknown]
  - Confusional state [Not Recovered/Not Resolved]
  - Product use issue [Unknown]
